FAERS Safety Report 26019477 (Version 2)
Quarter: 2025Q4

REPORT INFORMATION
  Report Type: Spontaneous
  Country: EU (occurrence: EU)
  Receive Date: 20251110
  Receipt Date: 20251229
  Transmission Date: 20260117
  Serious: Yes (Other)
  Sender: ALIMERA
  Company Number: EU-ALIMERA SCIENCES LIMITED-ES-A16013-25-000337

PATIENT
  Age: 70 Year
  Sex: Male

DRUGS (1)
  1. ILUVIEN [Suspect]
     Active Substance: FLUOCINOLONE ACETONIDE
     Indication: Macular oedema
     Dosage: 0.25 MICROGRAM, QD - LEFT EYE
     Route: 031
     Dates: start: 20251031

REACTIONS (6)
  - Syncope [Unknown]
  - Eye haemorrhage [Unknown]
  - Intraocular pressure increased [Unknown]
  - Off label use [Unknown]
  - Device use issue [Unknown]
  - Device difficult to use [Unknown]

NARRATIVE: CASE EVENT DATE: 20251031
